FAERS Safety Report 6871189-X (Version None)
Quarter: 2010Q3

REPORT INFORMATION
  Report Type: 
  Country: None (occurrence: None)
  Receive Date: 20100723
  Receipt Date: 20100716
  Transmission Date: 20110219
  Serious: Yes (Hospitalization, Other)
  Sender: FDA-Public Use
  Company Number: TN-ROCHE-715858

PATIENT
  Weight: 80 kg

DRUGS (2)
  1. PEGASYS [Suspect]
     Dosage: FREQUENCY:ONCE A WEEK
     Route: 058
     Dates: start: 20090221, end: 20100130
  2. COPEGUS [Suspect]
     Dosage: FREQUENCY DAILY
     Route: 048
     Dates: start: 20090221, end: 20100130

REACTIONS (2)
  - PARAESTHESIA [None]
  - VIITH NERVE PARALYSIS [None]
